FAERS Safety Report 15857035 (Version 2)
Quarter: 2019Q2

REPORT INFORMATION
  Report Type: Spontaneous
  Country: JP (occurrence: JP)
  Receive Date: 20190123
  Receipt Date: 20190604
  Transmission Date: 20190711
  Serious: Yes (Other)
  Sender: FDA-Public Use
  Company Number: PHHY2018JP016484

PATIENT
  Age: 76 Year
  Sex: Male

DRUGS (5)
  1. SOLDEM 3A [Concomitant]
     Active Substance: CARBOHYDRATES\POTASSIUM CHLORIDE\SODIUM CHLORIDE\SODIUM LACTATE
     Indication: PRODUCT USED FOR UNKNOWN INDICATION
     Dosage: 500 MG, QD
     Route: 065
     Dates: start: 20080120
  2. NOVASTAN [Suspect]
     Active Substance: ARGATROBAN
     Indication: EMBOLIC STROKE
     Dosage: 30 MG, QD
     Route: 041
     Dates: start: 20080120, end: 20080120
  3. EDARAVONE [Suspect]
     Active Substance: EDARAVONE
     Indication: EMBOLIC STROKE
     Dosage: UNK
     Route: 065
  4. LACTATED RINGERS SOLUTION [Concomitant]
     Active Substance: CALCIUM CHLORIDE\POTASSIUM CHLORIDE\SODIUM CHLORIDE\SODIUM LACTATE
     Indication: PRODUCT USED FOR UNKNOWN INDICATION
     Dosage: 500 ML, QD
     Route: 065
     Dates: start: 20080120
  5. SODIUM CHLORIDE. [Concomitant]
     Active Substance: SODIUM CHLORIDE
     Indication: PRODUCT USED FOR UNKNOWN INDICATION
     Dosage: 100 ML, QD
     Route: 041

REACTIONS (1)
  - Gastric ulcer haemorrhage [Recovered/Resolved]
